FAERS Safety Report 12670889 (Version 1)
Quarter: 2016Q3

REPORT INFORMATION
  Report Type: Spontaneous
  Country: US (occurrence: US)
  Receive Date: 20160822
  Receipt Date: 20160822
  Transmission Date: 20161109
  Serious: No
  Sender: FDA-Public Use
  Company Number: US-JAZZ-2016-US-006314

PATIENT
  Sex: Female

DRUGS (42)
  1. XYREM [Suspect]
     Active Substance: SODIUM OXYBATE
     Dosage: DOSE ADJUSTMENTS
     Route: 048
  2. FENTANYL. [Concomitant]
     Active Substance: FENTANYL
  3. FISH OIL [Concomitant]
     Active Substance: FISH OIL
  4. POLYETHYLENE GLYCOL [Concomitant]
     Active Substance: POLYETHYLENE GLYCOLS
  5. AMBIEN [Concomitant]
     Active Substance: ZOLPIDEM TARTRATE
  6. DITROPAN [Concomitant]
     Active Substance: OXYBUTYNIN CHLORIDE
  7. GLUCOSAMINE [Concomitant]
     Active Substance: GLUCOSAMINE
  8. LANSOPRAZOLE. [Concomitant]
     Active Substance: LANSOPRAZOLE
  9. MULTIVITAMIN [Concomitant]
     Active Substance: VITAMINS
  10. MULTIVITAMINS [Concomitant]
     Active Substance: VITAMINS
  11. ZOFRAN [Concomitant]
     Active Substance: ONDANSETRON HYDROCHLORIDE
  12. RESTASIS [Concomitant]
     Active Substance: CYCLOSPORINE
  13. MIRTAZAPINE. [Concomitant]
     Active Substance: MIRTAZAPINE
  14. VITAMIN D3 [Concomitant]
     Active Substance: CHOLECALCIFEROL
  15. WELLBUTRIN [Concomitant]
     Active Substance: BUPROPION HYDROCHLORIDE
  16. AMLODIPINE BESYLATE. [Concomitant]
     Active Substance: AMLODIPINE BESYLATE
  17. TYLENOL [Concomitant]
     Active Substance: ACETAMINOPHEN
  18. VITAMIN E [Concomitant]
     Active Substance: .ALPHA.-TOCOPHEROL
  19. XYREM [Suspect]
     Active Substance: SODIUM OXYBATE
     Dosage: 4.5 G, BID
     Route: 048
     Dates: start: 200907
  20. HYDROMORPHONE HCL [Concomitant]
     Active Substance: HYDROMORPHONE HYDROCHLORIDE
  21. LEVBID [Concomitant]
     Active Substance: HYOSCYAMINE SULFATE
  22. MAGNESIUM OXIDE. [Concomitant]
     Active Substance: MAGNESIUM OXIDE
  23. IMITREX [Concomitant]
     Active Substance: SUMATRIPTAN SUCCINATE
  24. XYREM [Suspect]
     Active Substance: SODIUM OXYBATE
     Indication: FIBROMYALGIA
     Dosage: 2.25 G, BID
     Route: 048
     Dates: start: 200406, end: 200407
  25. ENALAPRIL MALEATE. [Concomitant]
     Active Substance: ENALAPRIL MALEATE
  26. PROVIGIL [Concomitant]
     Active Substance: MODAFINIL
  27. AUGMENTIN [Concomitant]
     Active Substance: AMOXICILLIN\CLAVULANATE POTASSIUM
  28. FERROUS GLUCONATE [Concomitant]
     Active Substance: FERROUS GLUCONATE
  29. CITRACAL + D [Concomitant]
     Active Substance: CALCIUM CITRATE\VITAMIN D
  30. VAGIFEM [Concomitant]
     Active Substance: ESTRADIOL
  31. HYDROMORPHONE HCL [Concomitant]
     Active Substance: HYDROMORPHONE HYDROCHLORIDE
  32. OXYBUTYNIN CHLORIDE. [Concomitant]
     Active Substance: OXYBUTYNIN CHLORIDE
  33. CLONAZEPAM. [Concomitant]
     Active Substance: CLONAZEPAM
  34. IMITREX [Concomitant]
     Active Substance: SUMATRIPTAN SUCCINATE
  35. SIMETHICON [Concomitant]
  36. TUMS DUAL ACTION [Concomitant]
     Active Substance: CALCIUM CARBONATE\FAMOTIDINE\MAGNESIUM HYDROXIDE
  37. VITAMIN D [Concomitant]
     Active Substance: CHOLECALCIFEROL
  38. VITAMIN E [Concomitant]
     Active Substance: .ALPHA.-TOCOPHEROL
  39. ESCITALOPRAM [Concomitant]
     Active Substance: ESCITALOPRAM OXALATE
  40. IBUPROFEN. [Concomitant]
     Active Substance: IBUPROFEN
  41. ZINC CHELATE [Concomitant]
  42. ZOFRAN [Concomitant]
     Active Substance: ONDANSETRON HYDROCHLORIDE

REACTIONS (1)
  - Irritable bowel syndrome [Recovering/Resolving]
